FAERS Safety Report 7313882-0 (Version None)
Quarter: 2011Q1

REPORT INFORMATION
  Report Type: 
  Country: None (occurrence: None)
  Receive Date: 20110217
  Receipt Date: 20110217
  Transmission Date: 20110831
  Serious: Yes (Other)
  Sender: FDA-Public Use
  Company Number: None

PATIENT
  Age: 27 Year
  Sex: Female
  Weight: 74.8435 kg

DRUGS (1)
  1. DOXYCYCLINE HYCLATE [Suspect]
     Indication: BRONCHITIS
     Dosage: 20 TWICE DAILY PO
     Route: 048
     Dates: start: 20110213, end: 20110216

REACTIONS (8)
  - CHEST PAIN [None]
  - THROAT IRRITATION [None]
  - VISUAL IMPAIRMENT [None]
  - DYSPNOEA [None]
  - HOT FLUSH [None]
  - COLD SWEAT [None]
  - DYSPHONIA [None]
  - DIZZINESS [None]
